FAERS Safety Report 9095689 (Version 1)
Quarter: 2013Q1

REPORT INFORMATION
  Report Type: Spontaneous
  Country: IT (occurrence: None)
  Receive Date: 20130123
  Receipt Date: 20130123
  Transmission Date: 20140127
  Serious: Yes (Hospitalization, Other)
  Sender: FDA-Public Use
  Company Number: AUR-APL-2013-00717

PATIENT
  Age: 65 Year
  Sex: Male

DRUGS (8)
  1. SIMVASTATIN (SIMVASTATIN) [Suspect]
     Indication: DYSLIPIDAEMIA
     Route: 048
     Dates: start: 19800101, end: 20121218
  2. CARDIOASPIRIN (ACETYLSALICYLIC ACID) [Concomitant]
  3. ESAPENT (OMEGA-3 TRIGLYCERIDES) [Concomitant]
  4. GLIBENCLAMIDE (GLIBENCLAMIDE) [Concomitant]
  5. METFORMIN (METFORMIN) [Concomitant]
  6. INSULIN GLULISINE (INSULIN GLULISINE) [Concomitant]
  7. LOSARTAN/HYDROCHLORTHIAZIDE (HYDROCHLOROTHIAZIDE W/LOSARTAN) [Concomitant]
  8. NITROGLYCERINE (GLYCERYL TRINITRATE [Concomitant]

REACTIONS (3)
  - Renal failure acute [None]
  - Rhabdomyolysis [None]
  - Hepatitis toxic [None]
